FAERS Safety Report 25976480 (Version 1)
Quarter: 2025Q4

REPORT INFORMATION
  Report Type: Spontaneous
  Country: EU (occurrence: EU)
  Receive Date: 20251029
  Receipt Date: 20251029
  Transmission Date: 20260118
  Serious: Yes (Other)
  Sender: GRIFOLS
  Company Number: EU-EMA-DD-20251016-7482645-142503

PATIENT
  Age: 9 Year
  Sex: Male

DRUGS (12)
  1. HUMAN COAGULATION FACTOR VIII/VON WILLEBRAND FACTOR COMPLEX [Suspect]
     Active Substance: HUMAN COAGULATION FACTOR VIII/VON WILLEBRAND FACTOR COMPLEX
     Indication: Anti factor VIII antibody test
     Dosage: 2X100 U/KG/D, 2X50U/KG/D RESP
  2. HUMAN COAGULATION FACTOR VIII/VON WILLEBRAND FACTOR COMPLEX [Suspect]
     Active Substance: HUMAN COAGULATION FACTOR VIII/VON WILLEBRAND FACTOR COMPLEX
     Indication: Acquired haemophilia
  3. HUMAN COAGULATION FACTOR VIII/VON WILLEBRAND FACTOR COMPLEX [Suspect]
     Active Substance: HUMAN COAGULATION FACTOR VIII/VON WILLEBRAND FACTOR COMPLEX
     Indication: Immune tolerance induction
  4. HUMAN IMMUNOGLOBULIN G [Suspect]
     Active Substance: HUMAN IMMUNOGLOBULIN G
     Indication: Immune tolerance induction
     Dosage: UNK, UNKNOWN
  5. HUMAN IMMUNOGLOBULIN G [Suspect]
     Active Substance: HUMAN IMMUNOGLOBULIN G
     Indication: Off label use
  6. CAMPATH [Suspect]
     Active Substance: ALEMTUZUMAB
     Indication: Factor VIII inhibition
     Dosage: UNK, UNKNOWN
  7. CELLCEPT [Suspect]
     Active Substance: MYCOPHENOLATE MOFETIL
     Indication: Acquired haemophilia
     Dosage: DAILY DOSE: 600 MG/M2 MILLIGRAM(S)/SQ. METER EVERY DAY
  8. RITUXIMAB [Suspect]
     Active Substance: RITUXIMAB
     Indication: Acquired haemophilia
     Dosage: 375 MG/M2/D, WEEKLY
  9. CYCLOSPORINE [Suspect]
     Active Substance: CYCLOSPORINE
     Indication: Factor VIII inhibition
     Dosage: UNK, UNKNOWN
  10. DEXAMETHASONE [Suspect]
     Active Substance: DEXAMETHASONE
     Indication: Acquired haemophilia
     Dosage: DAY 1-4
  11. ANTIHEMOPHILIC FACTOR, HUMAN RECOMBINANT [Suspect]
     Active Substance: ANTIHEMOPHILIC FACTOR, HUMAN RECOMBINANT
     Indication: Anti factor VIII antibody test
     Dosage: UNK, UNKNOWN
  12. ANTIHEMOPHILIC FACTOR, HUMAN RECOMBINANT [Suspect]
     Active Substance: ANTIHEMOPHILIC FACTOR, HUMAN RECOMBINANT
     Indication: Acquired haemophilia

REACTIONS (16)
  - Agranulocytosis [Recovered/Resolved]
  - Cytomegalovirus infection reactivation [Recovered/Resolved]
  - Paronychia [Unknown]
  - Pneumonia [Unknown]
  - Sepsis [Unknown]
  - Psychotic disorder [Unknown]
  - Rebound effect [Unknown]
  - Factor VIII inhibition [Recovering/Resolving]
  - Condition aggravated [Unknown]
  - Obesity [Unknown]
  - Drug ineffective [Unknown]
  - Skin infection [Unknown]
  - Haemorrhage [Unknown]
  - Factor VIII inhibition [Unknown]
  - Haematoma [Unknown]
  - Nephrotic syndrome [Recovered/Resolved]
